FAERS Safety Report 4716785-0 (Version None)
Quarter: 2005Q3

REPORT INFORMATION
  Report Type: 
  Country: None (occurrence: None)
  Receive Date: 20050714
  Receipt Date: 20050622
  Transmission Date: 20060218
  Serious: Yes (Other)
  Sender: FDA-Public Use
  Company Number: 2005BH000607

PATIENT
  Age: 25 Year
  Sex: Female

DRUGS (1)
  1. LACTATED RINGER'S [Suspect]
     Indication: SURGERY
     Dosage: IV
     Route: 042
     Dates: start: 20050614

REACTIONS (3)
  - EYE SWELLING [None]
  - RASH [None]
  - THROAT IRRITATION [None]
